FAERS Safety Report 5519235-X (Version None)
Quarter: 2007Q4

REPORT INFORMATION
  Report Type: 
  Country: None (occurrence: None)
  Receive Date: 20071116
  Receipt Date: 20071107
  Transmission Date: 20080405
  Serious: Yes (Death, Hospitalization)
  Sender: FDA-Public Use
  Company Number: US-AMGEN-US241736

PATIENT
  Sex: Female
  Weight: 72.6 kg

DRUGS (24)
  1. PROCRIT [Suspect]
     Indication: RENAL FAILURE CHRONIC
     Route: 058
     Dates: start: 20070610, end: 20070822
  2. ARANESP [Suspect]
     Indication: RENAL FAILURE CHRONIC
  3. HYDRALAZINE HCL [Concomitant]
  4. BICARBONATE [Concomitant]
  5. COZAAR [Concomitant]
  6. NIFEREX [Concomitant]
  7. HECTORAL [Concomitant]
  8. LASIX [Concomitant]
  9. NOVOLIN 70/30 [Concomitant]
  10. IRON [Concomitant]
     Route: 042
  11. COREG [Concomitant]
  12. AVANDIA [Concomitant]
  13. AMITRIPTYLINE HCL [Concomitant]
  14. GABAPENTIN [Concomitant]
  15. ISOSORBIDE DINITRATE [Concomitant]
  16. LEXAPRO [Concomitant]
  17. METOCLOPRAMIDE [Concomitant]
  18. VERAPAMIL [Concomitant]
  19. ZELNORM [Concomitant]
  20. ZOCOR [Concomitant]
  21. PROTONIX [Concomitant]
  22. CATAPRES [Concomitant]
  23. HYDROCHLOROTHIAZIDE [Concomitant]
  24. ZAROXOLYN [Concomitant]

REACTIONS (5)
  - FLUID OVERLOAD [None]
  - GASTRIC ULCER [None]
  - OEDEMA [None]
  - PULMONARY CONGESTION [None]
  - RENAL FAILURE [None]
